FAERS Safety Report 4493192-X (Version None)
Quarter: 2004Q4

REPORT INFORMATION
  Report Type: 
  Country: None (occurrence: None)
  Receive Date: 20041029
  Receipt Date: 20041018
  Transmission Date: 20050328
  Serious: Yes (Hospitalization)
  Sender: FDA-Public Use
  Company Number: 2004-BP-10092BP

PATIENT
  Sex: Male

DRUGS (1)
  1. MOBIC [Suspect]
     Dosage: PO
     Route: 048
     Dates: start: 20040608, end: 20040612

REACTIONS (1)
  - CEREBROVASCULAR ACCIDENT [None]
